FAERS Safety Report 12705177 (Version 1)
Quarter: 2016Q3

REPORT INFORMATION
  Report Type: Report from Study
  Country: US (occurrence: US)
  Receive Date: 20160831
  Receipt Date: 20160831
  Transmission Date: 20161109
  Serious: No
  Sender: FDA-Public Use
  Company Number: US-AMGEN-USASL2016108086

PATIENT
  Age: 74 Year
  Sex: Male

DRUGS (1)
  1. ENBREL [Suspect]
     Active Substance: ETANERCEPT
     Indication: ARTHRITIS
     Dosage: UNK UNK, UNK
     Route: 065

REACTIONS (3)
  - Incorrect route of drug administration [Unknown]
  - Injection site swelling [Unknown]
  - Injection site rash [Recovered/Resolved]
